FAERS Safety Report 5204266-X (Version None)
Quarter: 2007Q1

REPORT INFORMATION
  Report Type: 
  Country: None (occurrence: None)
  Receive Date: 20070110
  Receipt Date: 20060127
  Transmission Date: 20070707
  Serious: No
  Sender: FDA-Public Use
  Company Number: US-BRISTOL-MYERS SQUIBB COMPANY-13262332

PATIENT
  Age: 72 Year
  Sex: Male
  Weight: 78 kg

DRUGS (5)
  1. ABILIFY [Suspect]
     Indication: ANGER
     Dates: start: 20051001
  2. LEVOTHYROXINE SODIUM [Concomitant]
  3. TIMOLOL MALEATE [Concomitant]
  4. CALCIUM [Concomitant]
  5. VITAMINS [Concomitant]

REACTIONS (9)
  - DRUG INEFFECTIVE [None]
  - FEELING ABNORMAL [None]
  - HEADACHE [None]
  - HUNGER [None]
  - INSOMNIA [None]
  - PAIN IN EXTREMITY [None]
  - RASH [None]
  - TREATMENT NONCOMPLIANCE [None]
  - VISION BLURRED [None]
